FAERS Safety Report 25333753 (Version 2)
Quarter: 2025Q2

REPORT INFORMATION
  Report Type: Spontaneous
  Country: US (occurrence: US)
  Receive Date: 20250520
  Receipt Date: 20250528
  Transmission Date: 20250717
  Serious: No
  Sender: ALEXION PHARMACEUTICALS
  Company Number: US-AstraZeneca-CH-00871066A

PATIENT
  Age: 88 Year

DRUGS (1)
  1. SAPHNELO [Suspect]
     Active Substance: ANIFROLUMAB-FNIA
     Route: 065

REACTIONS (4)
  - Alopecia [Not Recovered/Not Resolved]
  - Hypokinesia [Recovered/Resolved]
  - Eye swelling [Not Recovered/Not Resolved]
  - Butterfly rash [Not Recovered/Not Resolved]
